FAERS Safety Report 11257852 (Version 1)
Quarter: 2015Q3

REPORT INFORMATION
  Report Type: Report from Study
  Country: CN (occurrence: CN)
  Receive Date: 20150710
  Receipt Date: 20150710
  Transmission Date: 20151125
  Serious: Yes (Other)
  Sender: FDA-Public Use
  Company Number: CN-ACCORD-032071

PATIENT
  Age: 39 Year
  Sex: Male

DRUGS (3)
  1. INDOLAPRIL [Concomitant]
  2. SODIUM BICARBONATE. [Concomitant]
     Active Substance: SODIUM BICARBONATE
  3. ALLOPURINOL/ALLOPURINOL SODIUM [Suspect]
     Active Substance: ALLOPURINOL SODIUM
     Indication: HYPERURICAEMIA
     Dosage: 100 MG B.I.D

REACTIONS (2)
  - Drug reaction with eosinophilia and systemic symptoms [Recovering/Resolving]
  - Drug reaction with eosinophilia and systemic symptoms [None]
